FAERS Safety Report 6221968-7 (Version None)
Quarter: 2009Q2

REPORT INFORMATION
  Report Type: 
  Country: None (occurrence: None)
  Receive Date: 20090608
  Receipt Date: 20090608
  Transmission Date: 20091009
  Serious: Yes (Other)
  Sender: FDA-Public Use
  Company Number: None

PATIENT
  Age: 48 Year
  Sex: Female
  Weight: 74.8435 kg

DRUGS (1)
  1. METOCLOPRAMIDE [Suspect]
     Indication: GASTRIC DISORDER
     Dosage: 1  3 X'S DAILY
     Dates: start: 20090324, end: 20090503

REACTIONS (7)
  - ABASIA [None]
  - BACK PAIN [None]
  - DRUG INEFFECTIVE [None]
  - FUNGAL INFECTION [None]
  - MUSCLE SPASMS [None]
  - PAIN [None]
  - RHINORRHOEA [None]
